FAERS Safety Report 7249171-2 (Version None)
Quarter: 2011Q1

REPORT INFORMATION
  Report Type: 
  Country: None (occurrence: None)
  Receive Date: 20110128
  Receipt Date: 20101116
  Transmission Date: 20110831
  Serious: Yes (Hospitalization, Other)
  Sender: FDA-Public Use
  Company Number: US-BAYER-201033316NA

PATIENT
  Sex: Female
  Weight: 58.957 kg

DRUGS (11)
  1. YASMIN [Suspect]
     Indication: ORAL CONTRACEPTION
     Route: 048
     Dates: start: 20090501, end: 20090915
  2. FIORICET W/ CODEINE [Concomitant]
     Indication: HEADACHE
     Dosage: UNK
     Dates: start: 20090101
  3. YAZ [Suspect]
     Indication: ORAL CONTRACEPTION
     Dosage: UNK
     Route: 048
     Dates: start: 20090301, end: 20090927
  4. MIDRIN [Concomitant]
     Indication: MIGRAINE
     Dosage: UNK
     Dates: start: 20090918
  5. UNCODEABLE ^UNCLASSIFIABLE^ [Concomitant]
     Indication: DYSPEPSIA
  6. PREDNISONE [Concomitant]
     Indication: IDIOPATHIC THROMBOCYTOPENIC PURPURA
     Dosage: 20 MG, BID
     Dates: start: 20090301
  7. PERCOCET [Concomitant]
     Indication: PAIN
     Dosage: 5 MG, Q4HR
     Dates: start: 20090930
  8. IMMUNE GLOBULIN NOS [Concomitant]
     Indication: IDIOPATHIC THROMBOCYTOPENIC PURPURA
  9. COLACE [Concomitant]
  10. PERCOCET [Concomitant]
     Dosage: 325 MG, Q4HR
     Dates: start: 20090930
  11. ZOLOFT [Concomitant]
     Indication: MIGRAINE
     Dosage: UNK
     Dates: start: 20090918

REACTIONS (5)
  - CHOLESTEROSIS [None]
  - CHOLELITHIASIS [None]
  - ABDOMINAL PAIN [None]
  - NAUSEA [None]
  - CHOLECYSTITIS CHRONIC [None]
